FAERS Safety Report 15458220 (Version 1)
Quarter: 2018Q4

REPORT INFORMATION
  Report Type: Spontaneous
  Country: IT (occurrence: IT)
  Receive Date: 20181003
  Receipt Date: 20181003
  Transmission Date: 20190204
  Serious: Yes (Hospitalization, Other)
  Sender: FDA-Public Use
  Company Number: IT-TEVA-2018-IT-960129

PATIENT
  Age: 82 Year
  Sex: Male

DRUGS (2)
  1. TICLOPIDINA [Concomitant]
     Active Substance: TICLOPIDINE
     Route: 065
  2. CIPROFLOXACIN. [Suspect]
     Active Substance: CIPROFLOXACIN
     Dosage: 1000 MILLIGRAM DAILY;
     Route: 048
     Dates: start: 20080425, end: 20080430

REACTIONS (3)
  - Rash papular [Unknown]
  - Purpura [Unknown]
  - Petechiae [Unknown]

NARRATIVE: CASE EVENT DATE: 20080430
